FAERS Safety Report 9025008 (Version 4)
Quarter: 2013Q2

REPORT INFORMATION
  Report Type: Spontaneous
  Country: GR (occurrence: None)
  Receive Date: 20130104
  Receipt Date: 20130416
  Transmission Date: 20140414
  Serious: Yes (Hospitalization)
  Sender: FDA-Public Use
  Company Number: 2012-1589

PATIENT
  Age: 52 Year
  Sex: Male
  Weight: 105 kg

DRUGS (12)
  1. CARFILZOMIB (CARFILZOMIB) (20 MILLIGRAM(S)/SQ.METER, INJECTION FOR INFUSION) (CARFILZOMIB) [Suspect]
     Indication: PLASMA CELL MYELOMA
     Dosage: (44 MG, DAYS 1, 2)
     Route: 042
     Dates: start: 20120924, end: 20120925
  2. DEXAMETHASONE (DEXAMETHASONE) (DEXAMETHASONE) [Concomitant]
  3. ERYTHROPOIETIN (ERYTHROPOIETIN) (ERYTHROPOIETIN) [Concomitant]
  4. EUCREAS (METFORMIN HYDROCHLORIDE) (METFORMIN HYDROCHLORIDE) [Concomitant]
  5. BACTRIMEL (SULFAMETHOXAZOLE) (SULFAMETHOXAZOLE) [Concomitant]
  6. FILICIN (FOLIC ACID) (FOLIC ACID) [Concomitant]
  7. HEXALEN (HEXETIDINE) (HEXETIDINE) [Concomitant]
  8. NISTAMYCIN (NATAMYCIN) (NATAMYCIN) [Concomitant]
  9. CARVEPEN (CARVEDILOL) (CARVEDILOL) [Concomitant]
  10. LOSEC (OMEPRAZOLE) (OMEPRAZOLE) [Concomitant]
  11. OMNIC TOCAS (TAMSULOSIN HYDROCHLORIDE) (TAMSULOSIN HYDROCHLORIDE) [Concomitant]
  12. ZYLAPOUR (ALLOPURINOL) (ALLOPURINOL) [Concomitant]

REACTIONS (3)
  - Cardio-respiratory distress [None]
  - Fatigue [None]
  - Cardiac failure congestive [None]
